FAERS Safety Report 9105783 (Version 3)
Quarter: 2013Q2

REPORT INFORMATION
  Report Type: Spontaneous
  Country: JP (occurrence: JP)
  Receive Date: 20130220
  Receipt Date: 20130509
  Transmission Date: 20140414
  Serious: No
  Sender: FDA-Public Use
  Company Number: JP-UCBSA-078564

PATIENT
  Age: 13 Year
  Sex: Female
  Weight: 49 kg

DRUGS (2)
  1. E KEPPRA [Suspect]
     Indication: CONVULSION
     Route: 048
     Dates: start: 20130104, end: 20130118
  2. DEPAKENE [Concomitant]
     Dosage: DAILY DOSE:1200 MG
     Route: 048
     Dates: start: 20121002

REACTIONS (3)
  - Platelet count decreased [Recovered/Resolved]
  - White blood cell count decreased [Recovered/Resolved]
  - Hepatic function abnormal [Recovered/Resolved]
